FAERS Safety Report 7335782-2 (Version None)
Quarter: 2011Q1

REPORT INFORMATION
  Report Type: 
  Country: None (occurrence: None)
  Receive Date: 20110301
  Receipt Date: 20110301
  Transmission Date: 20110831
  Serious: Yes (Other)
  Sender: FDA-Public Use
  Company Number: None

PATIENT
  Age: 87 Year
  Sex: Female
  Weight: 45.3597 kg

DRUGS (1)
  1. SEROQUEL [Suspect]
     Indication: PSYCHOTIC DISORDER
     Dosage: 25 MG PO BY MOUTH
     Route: 048
     Dates: start: 20090417, end: 20090630

REACTIONS (2)
  - MEMORY IMPAIRMENT [None]
  - DEMENTIA [None]
